FAERS Safety Report 24910329 (Version 1)
Quarter: 2025Q1

REPORT INFORMATION
  Report Type: Spontaneous
  Country: GB (occurrence: GB)
  Receive Date: 20250131
  Receipt Date: 20250131
  Transmission Date: 20250408
  Serious: Yes (Life-Threatening, Other)
  Sender: PFIZER
  Company Number: GB-PFIZER INC-PV202500010490

PATIENT
  Age: 77 Year
  Sex: Male

DRUGS (7)
  1. PANCURONIUM BROMIDE [Suspect]
     Active Substance: PANCURONIUM BROMIDE
     Indication: Induction of anaesthesia
  2. FENTANYL HYDROCHLORIDE [Suspect]
     Active Substance: FENTANYL HYDROCHLORIDE
     Indication: Induction of anaesthesia
  3. FENTANYL HYDROCHLORIDE [Suspect]
     Active Substance: FENTANYL HYDROCHLORIDE
  4. MIDAZOLAM HYDROCHLORIDE [Suspect]
     Active Substance: MIDAZOLAM HYDROCHLORIDE
     Indication: Induction of anaesthesia
  5. ISOFLURANE [Suspect]
     Active Substance: ISOFLURANE
     Indication: Induction of anaesthesia
  6. PROPOFOL [Suspect]
     Active Substance: PROPOFOL
     Indication: Induction of anaesthesia
  7. PROPOFOL [Suspect]
     Active Substance: PROPOFOL

REACTIONS (1)
  - Phaeochromocytoma [Unknown]
